FAERS Safety Report 9193895 (Version 1)
Quarter: 2013Q1

REPORT INFORMATION
  Report Type: Spontaneous
  Country: GB (occurrence: GB)
  Receive Date: 20130327
  Receipt Date: 20130327
  Transmission Date: 20140127
  Serious: Yes (Other)
  Sender: FDA-Public Use
  Company Number: GB-TEVA-393088ISR

PATIENT
  Age: 38 Year
  Sex: Male
  Weight: 70 kg

DRUGS (6)
  1. MIRTAZAPINE [Suspect]
     Indication: DEPRESSION
     Dosage: 45 MILLIGRAM DAILY;
  2. MIRTAZAPINE [Interacting]
     Dosage: 15 MILLIGRAM DAILY;
     Dates: end: 20130212
  3. DIAZEPAM [Interacting]
  4. NITRAZEPAM [Interacting]
  5. VICTRELIS [Interacting]
     Indication: HEPATITIS C
     Route: 048
     Dates: start: 20121217
  6. OPIUM [Suspect]

REACTIONS (4)
  - Hyperhidrosis [Recovered/Resolved]
  - Tachycardia [Recovered/Resolved]
  - Drug interaction [Unknown]
  - Withdrawal syndrome [Recovered/Resolved]
